FAERS Safety Report 10970111 (Version 1)
Quarter: 2015Q1

REPORT INFORMATION
  Report Type: Spontaneous
  Country: US (occurrence: US)
  Receive Date: 20150331
  Receipt Date: 20150331
  Transmission Date: 20150721
  Serious: No
  Sender: FDA-Public Use
  Company Number: US-MYLANLABS-2014S1008763

PATIENT
  Sex: Female
  Weight: 69.85 kg

DRUGS (5)
  1. VALIUM [Concomitant]
     Active Substance: DIAZEPAM
     Dosage: UNK
  2. MORPHINE SULFATE EXTENDED-RELEASE [Concomitant]
     Active Substance: MORPHINE SULFATE
     Dosage: UNK
  3. ESTRADIOL TRANSDERMAL SYSTEM [Suspect]
     Active Substance: ESTRADIOL
     Indication: MENOPAUSE
     Dosage: .075 MG,QD
     Route: 062
     Dates: start: 2006
  4. OXYCONTIN [Concomitant]
     Active Substance: OXYCODONE HYDROCHLORIDE
     Dosage: UNK
  5. HALCION [Concomitant]
     Active Substance: TRIAZOLAM
     Dosage: UNK

REACTIONS (4)
  - Application site irritation [Not Recovered/Not Resolved]
  - Incorrect drug administration duration [Not Recovered/Not Resolved]
  - Pruritus [Not Recovered/Not Resolved]
  - Night sweats [Not Recovered/Not Resolved]

NARRATIVE: CASE EVENT DATE: 2006
